FAERS Safety Report 9800943 (Version 1)
Quarter: 2014Q1

REPORT INFORMATION
  Report Type: Spontaneous
  Country: US (occurrence: US)
  Receive Date: 20140107
  Receipt Date: 20140107
  Transmission Date: 20141002
  Serious: Yes (Hospitalization)
  Sender: FDA-Public Use
  Company Number: US-JNJFOC-20140100640

PATIENT
  Sex: Male
  Weight: 99.79 kg

DRUGS (18)
  1. TOPAMAX [Suspect]
     Indication: CONVULSION
     Route: 048
  2. TOPAMAX [Suspect]
     Indication: CONVULSION
     Dosage: AFTER SIX MONTHS
     Route: 048
  3. TOPAMAX [Suspect]
     Indication: CONVULSION
     Dosage: AFTER THREE MONTHS
     Route: 048
  4. TOPAMAX [Suspect]
     Indication: CONVULSION
     Dosage: AFTER THREE MONTHS
     Route: 048
  5. TOPAMAX [Suspect]
     Indication: CONVULSION
     Dosage: AFTER THREE MONTHS
     Route: 048
  6. TOPAMAX [Suspect]
     Indication: CONVULSION
     Dosage: AFTER THREE MONTHS
     Route: 048
  7. TOPAMAX [Suspect]
     Indication: MIGRAINE
     Route: 048
  8. TOPAMAX [Suspect]
     Indication: MIGRAINE
     Dosage: AFTER SIX MONTHS
     Route: 048
  9. TOPAMAX [Suspect]
     Indication: MIGRAINE
     Dosage: AFTER THREE MONTHS
     Route: 048
  10. TOPAMAX [Suspect]
     Indication: MIGRAINE
     Dosage: AFTER THREE MONTHS
     Route: 048
  11. TOPAMAX [Suspect]
     Indication: MIGRAINE
     Dosage: AFTER THREE MONTHS
     Route: 048
  12. TOPAMAX [Suspect]
     Indication: MIGRAINE
     Dosage: AFTER THREE MONTHS
     Route: 048
  13. TOPIRAMATE [Suspect]
     Indication: CONVULSION
     Route: 048
  14. TOPIRAMATE [Suspect]
     Indication: CONVULSION
     Route: 048
  15. TOPIRAMATE [Suspect]
     Indication: CONVULSION
     Route: 048
  16. TOPIRAMATE [Suspect]
     Indication: MIGRAINE
     Route: 048
  17. TOPIRAMATE [Suspect]
     Indication: MIGRAINE
     Route: 048
  18. TOPIRAMATE [Suspect]
     Indication: MIGRAINE
     Route: 048

REACTIONS (3)
  - Convulsion [Recovered/Resolved]
  - Laceration [Recovered/Resolved]
  - Migraine [Unknown]
